FAERS Safety Report 6173998-1 (Version None)
Quarter: 2009Q2

REPORT INFORMATION
  Report Type: 
  Country: None (occurrence: None)
  Receive Date: 20090430
  Receipt Date: 20080409
  Transmission Date: 20091009
  Serious: No
  Sender: FDA-Public Use
  Company Number: US-ASTRAZENECA-2006UW01491

PATIENT
  Age: 70 Year
  Sex: Female
  Weight: 64.9 kg

DRUGS (10)
  1. NEXIUM [Suspect]
     Indication: GASTROOESOPHAGEAL REFLUX DISEASE
     Route: 048
     Dates: start: 20050501, end: 20050701
  2. NEXIUM [Suspect]
     Route: 048
     Dates: start: 20050701
  3. NEXIUM [Suspect]
     Route: 048
  4. MYLANTA [Suspect]
     Dates: start: 20060127
  5. ZOLOFT [Concomitant]
  6. ESTRACE [Concomitant]
  7. ZANTAC [Concomitant]
  8. TYLENOL [Concomitant]
  9. ALLEGRA [Concomitant]
  10. LIPITOR [Concomitant]

REACTIONS (7)
  - ABDOMINAL DISCOMFORT [None]
  - ABDOMINAL PAIN UPPER [None]
  - BLOOD OESTROGEN DECREASED [None]
  - NAUSEA [None]
  - OESTROGEN DEFICIENCY [None]
  - OROPHARYNGEAL PAIN [None]
  - REFLUX OESOPHAGITIS [None]
